FAERS Safety Report 9834383 (Version 4)
Quarter: 2014Q3

REPORT INFORMATION
  Report Type: Spontaneous
  Country: US (occurrence: US)
  Receive Date: 20140122
  Receipt Date: 20140805
  Transmission Date: 20150326
  Serious: Yes (Disabling, Other)
  Sender: FDA-Public Use
  Company Number: US-009507513-1401USA006301

PATIENT
  Sex: Male
  Weight: 69.84 kg

DRUGS (4)
  1. LIPITOR [Concomitant]
     Active Substance: ATORVASTATIN CALCIUM
     Indication: BLOOD CHOLESTEROL
     Dosage: 40-80 MG QD
     Dates: start: 2005
  2. PROTONIX [Concomitant]
     Active Substance: PANTOPRAZOLE SODIUM
     Indication: GASTROOESOPHAGEAL REFLUX DISEASE
     Dosage: UNK
     Dates: start: 2004, end: 2008
  3. ATENOLOL. [Concomitant]
     Active Substance: ATENOLOL
     Indication: BLOOD PRESSURE
     Dosage: 25-50 MG QD
     Dates: start: 2000
  4. PROPECIA [Suspect]
     Active Substance: FINASTERIDE
     Indication: ANDROGENETIC ALOPECIA
     Dosage: 1 MG, QD
     Route: 048
     Dates: start: 200603, end: 200610

REACTIONS (28)
  - Depression [Not Recovered/Not Resolved]
  - Major depression [Unknown]
  - Hypogonadism [Unknown]
  - Tendon disorder [Unknown]
  - Pharyngitis streptococcal [Unknown]
  - Vertigo positional [Unknown]
  - Testicular atrophy [Unknown]
  - Cognitive disorder [Not Recovered/Not Resolved]
  - Semen volume decreased [Not Recovered/Not Resolved]
  - Erectile dysfunction [Not Recovered/Not Resolved]
  - Infertility male [Not Recovered/Not Resolved]
  - Tinea cruris [Unknown]
  - Vasomotor rhinitis [Unknown]
  - Blood testosterone decreased [Unknown]
  - Testicular disorder [Unknown]
  - Restless legs syndrome [Unknown]
  - Drug abuse [Unknown]
  - Mood altered [Unknown]
  - Neck pain [Unknown]
  - Libido decreased [Not Recovered/Not Resolved]
  - Impaired fasting glucose [Unknown]
  - Deafness [Unknown]
  - Back pain [Not Recovered/Not Resolved]
  - Blood calcitonin increased [Unknown]
  - Anxiety [Not Recovered/Not Resolved]
  - Glossitis [Unknown]
  - Testicular atrophy [Unknown]
  - Testicular disorder [Unknown]

NARRATIVE: CASE EVENT DATE: 2006
